FAERS Safety Report 7712435-X (Version None)
Quarter: 2011Q3

REPORT INFORMATION
  Report Type: 
  Country: None (occurrence: None)
  Receive Date: 20110826
  Receipt Date: 20110818
  Transmission Date: 20111222
  Serious: Yes (Hospitalization)
  Sender: FDA-Public Use
  Company Number: DE-US-EMD SERONO, INC.-7073889

PATIENT
  Sex: Male
  Weight: 30.5 kg

DRUGS (2)
  1. SAIZEN [Suspect]
     Indication: GROWTH HORMONE DEFICIENCY
  2. SAIZEN [Suspect]
     Indication: DWARFISM
     Route: 058
     Dates: start: 20101022

REACTIONS (6)
  - PAIN [None]
  - SENSORY DISTURBANCE [None]
  - PARAESTHESIA ORAL [None]
  - FEELING HOT [None]
  - MYALGIA [None]
  - ACTIVITIES OF DAILY LIVING IMPAIRED [None]
